FAERS Safety Report 24659732 (Version 3)
Quarter: 2024Q4

REPORT INFORMATION
  Report Type: Spontaneous
  Country: US (occurrence: US)
  Receive Date: 20241125
  Receipt Date: 20241210
  Transmission Date: 20250114
  Serious: No
  Sender: PFIZER
  Company Number: US-PFIZER INC-202400306511

PATIENT

DRUGS (1)
  1. TIVDAK [Suspect]
     Active Substance: TISOTUMAB VEDOTIN-TFTV
     Dosage: UNK

REACTIONS (2)
  - Liver function test increased [Recovering/Resolving]
  - Blood bilirubin increased [Not Recovered/Not Resolved]
